FAERS Safety Report 4736602-2 (Version None)
Quarter: 2005Q3

REPORT INFORMATION
  Report Type: 
  Country: None (occurrence: None)
  Receive Date: 20050804
  Receipt Date: 20050804
  Transmission Date: 20060218
  Serious: Yes (Hospitalization, Other)
  Sender: FDA-Public Use
  Company Number: None

PATIENT
  Sex: Male
  Weight: 2.29 kg

DRUGS (2)
  1. TISSUE [Suspect]
     Indication: MULTIPLE MYELOMA
     Dosage: SEE IMAGE
     Route: 050
     Dates: start: 20050119
  2. TISSUE [Suspect]
     Dosage: SEE IMAGE
     Route: 050
     Dates: start: 20050503

REACTIONS (11)
  - ABDOMINAL PAIN [None]
  - BACTERIAL INFECTION [None]
  - BLOOD CULTURE POSITIVE [None]
  - CATHETER RELATED INFECTION [None]
  - CHILLS [None]
  - DIARRHOEA [None]
  - HAEMOGLOBIN DECREASED [None]
  - INFECTION [None]
  - KLEBSIELLA INFECTION [None]
  - PYREXIA [None]
  - STAPHYLOCOCCAL INFECTION [None]
